FAERS Safety Report 10453071 (Version 2)
Quarter: 2014Q3

REPORT INFORMATION
  Report Type: Spontaneous
  Country: US (occurrence: US)
  Receive Date: 20140915
  Receipt Date: 20140926
  Transmission Date: 20150326
  Serious: Yes (Hospitalization)
  Sender: FDA-Public Use
  Company Number: US-LUNDBECK-DKLU1103453

PATIENT

DRUGS (7)
  1. SABRIL [Suspect]
     Active Substance: VIGABATRIN
     Dates: start: 20140821
  2. PREDNISONE. [Concomitant]
     Active Substance: PREDNISONE
     Indication: PRODUCT USED FOR UNKNOWN INDICATION
  3. SABRIL [Suspect]
     Active Substance: VIGABATRIN
  4. TOPAMAX [Concomitant]
     Active Substance: TOPIRAMATE
     Indication: PRODUCT USED FOR UNKNOWN INDICATION
  5. SABRIL [Suspect]
     Active Substance: VIGABATRIN
     Dates: end: 20140714
  6. SABRIL [Suspect]
     Active Substance: VIGABATRIN
     Dates: start: 20140825
  7. SABRIL [Suspect]
     Active Substance: VIGABATRIN
     Indication: INFANTILE SPASMS
     Dates: start: 20140516

REACTIONS (3)
  - Oesophagitis [Recovered/Resolved]
  - Haematemesis [Recovered/Resolved]
  - Salivary hypersecretion [Unknown]
